FAERS Safety Report 9868796 (Version 1)
Quarter: 2014Q1

REPORT INFORMATION
  Report Type: Spontaneous
  Country: CA (occurrence: CA)
  Receive Date: 20140204
  Receipt Date: 20140204
  Transmission Date: 20141002
  Serious: Yes (Death)
  Sender: FDA-Public Use
  Company Number: CA-VERTEX PHARMACEUTICALS INC-2014-000494

PATIENT
  Age: 59 Year
  Sex: Male
  Weight: 95 kg

DRUGS (6)
  1. INCIVEK [Suspect]
     Indication: HEPATITIS C
  2. PEGASYS [Suspect]
     Indication: HEPATITIS C
     Dosage: 180 MG, UNK
     Route: 058
  3. RIBAVIRIN [Suspect]
     Indication: HEPATITIS C
     Dosage: 1400 MG, UNK
     Route: 048
  4. HYDROCHLOROTHIAZIDE [Concomitant]
  5. PERINDOPRIL [Concomitant]
  6. SYNTHROID [Concomitant]

REACTIONS (2)
  - Myocardial infarction [Fatal]
  - Haemoglobin decreased [Fatal]
